FAERS Safety Report 7580894-1 (Version None)
Quarter: 2011Q2

REPORT INFORMATION
  Report Type: 
  Country: None (occurrence: None)
  Receive Date: 20110629
  Receipt Date: 20110615
  Transmission Date: 20111010
  Serious: Yes (Other)
  Sender: FDA-Public Use
  Company Number: JP-MERCK-1106USA02698

PATIENT
  Age: 76 Year
  Sex: Male

DRUGS (14)
  1. TREMIN [Suspect]
     Indication: PARKINSON'S DISEASE
     Dosage: DIVIDED DOSE FRECUANCY U
     Route: 048
     Dates: start: 19980801, end: 19980801
  2. SINEMET [Suspect]
     Dosage: DIVIDED DOSE FREQUENCY U
     Route: 048
     Dates: start: 20050101
  3. CABERGOLINE [Concomitant]
     Indication: PARKINSON'S DISEASE
     Dosage: DIVIDED DOSE FRECUENCY U
     Route: 048
     Dates: start: 20021001, end: 20040201
  4. SINEMET [Suspect]
     Dosage: DIVIDED DOSE FREQUENCY U
     Route: 048
     Dates: start: 20040101, end: 20050101
  5. PERGOLIDE MESYLATE [Suspect]
     Dosage: DIVIDED DOSE FRECUENCY U
     Route: 048
     Dates: start: 19980701, end: 19980801
  6. BROMOCRIPTINE MESYLATE [Concomitant]
     Indication: PARKINSON'S DISEASE
     Dosage: DIVIDED DOSE FRECUENCY U
     Route: 048
     Dates: start: 19990901
  7. AMANTADINE HYDROCHLORIDE [Concomitant]
     Indication: PARKINSON'S DISEASE
     Route: 048
     Dates: start: 19980801
  8. SINEMET [Suspect]
     Indication: PARKINSON'S DISEASE
     Dosage: DIVIDED DOSE FREQUENCY U
     Route: 048
     Dates: start: 19980701, end: 19980801
  9. PERGOLIDE MESYLATE [Suspect]
     Indication: PARKINSON'S DISEASE
     Dosage: DIVIDED DOSE FRECUENCY U
     Route: 048
     Dates: start: 19980601, end: 19980701
  10. CABERGOLINE [Concomitant]
     Dosage: DIVIDED DOSE FRECUENCY U
     Route: 048
     Dates: start: 20040201, end: 20051001
  11. SINEMET [Suspect]
     Dosage: DIVIDED DOSE FREQUENCY U
     Route: 048
     Dates: start: 19970101, end: 19980601
  12. SINEMET [Suspect]
     Dosage: DIVIDED DOSE FREQUENCY U
     Route: 048
     Dates: start: 19980801, end: 19980801
  13. SINEMET [Suspect]
     Dosage: DIVIDED DOSE FREQUENCY U
     Route: 048
     Dates: start: 20040201
  14. SINEMET [Suspect]
     Dosage: DIVIDED DOSE FREQUENCY U
     Route: 048
     Dates: start: 19980601, end: 19980701

REACTIONS (10)
  - PERSECUTORY DELUSION [None]
  - SCREAMING [None]
  - PARKINSON'S DISEASE [None]
  - DRUG INEFFECTIVE [None]
  - CONDITION AGGRAVATED [None]
  - DELUSION [None]
  - HALLUCINATION [None]
  - BLOOD PRESSURE DECREASED [None]
  - ABNORMAL BEHAVIOUR [None]
  - SOMNOLENCE [None]
